FAERS Safety Report 8547974-5 (Version None)
Quarter: 2012Q3

REPORT INFORMATION
  Report Type: 
  Country: None (occurrence: None)
  Receive Date: 20120729
  Receipt Date: 20120719
  Transmission Date: 20120928
  Serious: Yes (Hospitalization, Disabling, Other)
  Sender: FDA-Public Use
  Company Number: US-009507513-1111USA01290

PATIENT

DRUGS (6)
  1. FOSAMAX PLUS D [Suspect]
     Indication: OSTEOPENIA
     Dosage: 70-5600
     Route: 048
     Dates: start: 20081003, end: 20090104
  2. FOSAMAX [Suspect]
     Indication: OSTEOPOROSIS
     Dosage: 10 MG, UNK
     Route: 048
     Dates: start: 20001005, end: 20021101
  3. FOSAMAX [Suspect]
     Indication: OSTEOPENIA
     Dosage: 70 MG, UNK
     Route: 048
     Dates: start: 20021126, end: 20070601
  4. HORMONES (UNSPECIFIED) [Concomitant]
     Route: 048
     Dates: start: 19970101, end: 20020101
  5. FOSAMAX PLUS D [Suspect]
     Indication: OSTEOPOROSIS
     Dosage: 70-2800
     Route: 048
     Dates: start: 20070309, end: 20080627
  6. CALCIUM (UNSPECIFIED) [Concomitant]
     Dosage: 600 MG, QD
     Route: 048
     Dates: start: 19970101

REACTIONS (29)
  - CALCIUM DEFICIENCY [None]
  - GINGIVAL DISORDER [None]
  - GALLBLADDER DISORDER [None]
  - INTERVERTEBRAL DISC PROTRUSION [None]
  - ANXIETY [None]
  - VULVOVAGINAL DRYNESS [None]
  - CERVICOBRACHIAL SYNDROME [None]
  - VARICOSE VEIN [None]
  - CERVICAL CORD COMPRESSION [None]
  - VITAMIN D DEFICIENCY [None]
  - POST PROCEDURAL HAEMORRHAGE [None]
  - HYPERCHOLESTEROLAEMIA [None]
  - URINARY TRACT INFECTION [None]
  - HEPATIC CYST [None]
  - NOCTURIA [None]
  - URINE KETONE BODY PRESENT [None]
  - ANAEMIA [None]
  - CERVICAL SPINAL STENOSIS [None]
  - LOW TURNOVER OSTEOPATHY [None]
  - FEMUR FRACTURE [None]
  - NAUSEA [None]
  - RENAL CYST [None]
  - HAND FRACTURE [None]
  - MICTURITION URGENCY [None]
  - SPINAL OSTEOARTHRITIS [None]
  - SKIN GRAFT [None]
  - MYALGIA [None]
  - DRY EYE [None]
  - BLOOD OESTROGEN DECREASED [None]
